FAERS Safety Report 6082392-3 (Version None)
Quarter: 2009Q1

REPORT INFORMATION
  Report Type: 
  Country: None (occurrence: None)
  Receive Date: 20090218
  Receipt Date: 20090205
  Transmission Date: 20090719
  Serious: Yes (Other)
  Sender: FDA-Public Use
  Company Number: GB-GENENTECH-274580

PATIENT
  Age: 35 Year
  Sex: Female

DRUGS (8)
  1. XOLAIR [Suspect]
     Indication: ASTHMA
     Dosage: UNK
  2. BUDESONIDE [Concomitant]
     Indication: DRUG USE FOR UNKNOWN INDICATION
  3. SINGULAIR [Concomitant]
     Indication: DRUG USE FOR UNKNOWN INDICATION
  4. RHINOCORT [Concomitant]
     Indication: DRUG USE FOR UNKNOWN INDICATION
  5. CALCICHEW [Concomitant]
     Indication: DRUG USE FOR UNKNOWN INDICATION
  6. CETIRIZINE [Concomitant]
     Indication: DRUG USE FOR UNKNOWN INDICATION
  7. CITALOPRAM HYDROBROMIDE [Concomitant]
     Indication: DRUG USE FOR UNKNOWN INDICATION
  8. FORMOTEROL FUMARATE [Concomitant]
     Indication: DRUG USE FOR UNKNOWN INDICATION
     Dosage: 12 A?G, BID

REACTIONS (1)
  - ASTHMA [None]
